FAERS Safety Report 7911083-6 (Version None)
Quarter: 2011Q4

REPORT INFORMATION
  Report Type: 
  Country: None (occurrence: None)
  Receive Date: 20111114
  Receipt Date: 20111103
  Transmission Date: 20120403
  Serious: Yes (Other)
  Sender: FDA-Public Use
  Company Number: FR-BRISTOL-MYERS SQUIBB COMPANY-16076564

PATIENT
  Age: 54 Year
  Sex: Male

DRUGS (10)
  1. EPIVIR [Suspect]
     Indication: HIV INFECTION
     Dates: start: 20011101, end: 20020401
  2. FOSAMPRENAVIR CALCIUM [Suspect]
     Indication: HIV INFECTION
     Dates: start: 20041001
  3. ZERIT [Suspect]
     Indication: HIV INFECTION
     Dates: start: 20011101, end: 20020401
  4. NORVIR [Suspect]
     Indication: HIV INFECTION
     Dates: start: 20041001
  5. COMBIVIR [Suspect]
     Indication: HIV INFECTION
  6. ZIAGEN [Suspect]
     Indication: HIV INFECTION
     Dosage: UNK-UNK OCT04-UNK MAR08-11APR08 MAY08-OCT08 OCT08-UNK OCT11-UNK INT AND RESTARTED
  7. VIREAD [Suspect]
     Indication: HIV INFECTION
     Dosage: OCT04-UNK MAR08-APR08 MAY08-OCT08 INT AND RESTARTED
     Dates: start: 20041001
  8. SUSTIVA [Suspect]
     Indication: HIV INFECTION
     Dosage: INT ON APR02 AND RESTARTED ON MAY08 MAY08-OCT08
     Dates: start: 20011101
  9. VIDEX [Suspect]
     Indication: HIV INFECTION
     Dosage: OCT08-UNK OCT11-UNK
     Dates: start: 20081001
  10. REYATAZ [Suspect]
     Indication: HIV INFECTION
     Dosage: MAR08-APR08 OCT08-UNK OCT11-UNK
     Dates: start: 20080301

REACTIONS (4)
  - GYNAECOMASTIA [None]
  - MENIERE'S DISEASE [None]
  - ENDOLYMPHATIC HYDROPS [None]
  - PANCREATITIS [None]
